FAERS Safety Report 5180929-X (Version None)
Quarter: 2006Q4

REPORT INFORMATION
  Report Type: 
  Country: None (occurrence: None)
  Receive Date: 20061218
  Receipt Date: 20061218
  Transmission Date: 20070319
  Serious: No
  Sender: FDA-Public Use
  Company Number: None

PATIENT
  Age: 51 Year
  Sex: Male
  Weight: 83.9154 kg

DRUGS (1)
  1. CEPHALEXIN [Suspect]
     Indication: GINGIVAL INFECTION
     Dosage: 1 CAPSULE  EVERY 6 HRS   PO
     Route: 048
     Dates: start: 20061212, end: 20061215

REACTIONS (4)
  - HERPES SIMPLEX [None]
  - MUCOSAL INFLAMMATION [None]
  - NASAL DRYNESS [None]
  - RHINALGIA [None]
